FAERS Safety Report 11309728 (Version 6)
Quarter: 2015Q4

REPORT INFORMATION
  Report Type: Spontaneous
  Country: JP (occurrence: JP)
  Receive Date: 20150724
  Receipt Date: 20151127
  Transmission Date: 20160304
  Serious: Yes (Hospitalization)
  Sender: FDA-Public Use
  Company Number: JP-ASTRAZENECA-2015SE72013

PATIENT
  Age: 64 Year
  Sex: Male
  Weight: 70 kg

DRUGS (51)
  1. SOLYUGEN [Concomitant]
  2. MINOCYCLINE\MINOCYCLINE HYDROCHLORIDE [Concomitant]
     Active Substance: MINOCYCLINE\MINOCYCLINE HYDROCHLORIDE
     Dates: start: 20150703
  3. VITAMEDIN [Concomitant]
     Active Substance: CYANOCOBALAMIN\PYRIDOXINE HYDROCHLORIDE\THIAMINE
     Dates: start: 20150630
  4. PRECEDEX [Concomitant]
     Active Substance: DEXMEDETOMIDINE HYDROCHLORIDE
  5. SEROQUEL [Suspect]
     Active Substance: QUETIAPINE FUMARATE
     Indication: PRODUCT USED FOR UNKNOWN INDICATION
     Dosage: 50 MG DAILY 18:00
     Route: 048
     Dates: start: 20150707, end: 20150710
  6. FLAGYL [Suspect]
     Active Substance: METRONIDAZOLE\METRONIDAZOLE HYDROCHLORIDE
     Indication: PSEUDOMEMBRANOUS COLITIS
     Route: 048
     Dates: start: 20150714, end: 20150715
  7. TAKEPRON [Suspect]
     Active Substance: LANSOPRAZOLE
     Route: 048
     Dates: start: 20150709, end: 20150713
  8. AZUNOL [Concomitant]
     Active Substance: SODIUM GUALENATE
     Dates: start: 20150709, end: 20150717
  9. SOLITA [Concomitant]
     Dates: start: 20150709
  10. BISOLVON [Concomitant]
     Active Substance: BROMHEXINE HYDROCHLORIDE
  11. GASTER [Concomitant]
     Active Substance: FAMOTIDINE
     Dates: end: 20150708
  12. NORMAL SALINE [Concomitant]
     Active Substance: SODIUM CHLORIDE
  13. MANNITOL. [Concomitant]
     Active Substance: MANNITOL
     Dates: start: 20150629
  14. SEROQUEL [Suspect]
     Active Substance: QUETIAPINE FUMARATE
     Indication: RESTLESSNESS
     Dosage: 50 MG DAILY 18:00
     Route: 048
     Dates: start: 20150707, end: 20150710
  15. SEROQUEL [Suspect]
     Active Substance: QUETIAPINE FUMARATE
     Indication: PRODUCT USED FOR UNKNOWN INDICATION
     Route: 048
     Dates: start: 20150710, end: 20150716
  16. SEROQUEL [Suspect]
     Active Substance: QUETIAPINE FUMARATE
     Indication: RESTLESSNESS
     Route: 048
     Dates: start: 20150710, end: 20150716
  17. LACB-R [Concomitant]
     Dates: start: 20150715, end: 20150715
  18. KCL [Concomitant]
     Active Substance: POTASSIUM CHLORIDE
  19. VEEN D [Concomitant]
     Active Substance: CALCIUM CHLORIDE\DEXTROSE\POTASSIUM CHLORIDE\SODIUM ACETATE\SODIUM CHLORIDE
  20. ALBUMIN [Concomitant]
     Active Substance: ALBUMIN (HUMAN)
     Dates: start: 20150630
  21. SEROQUEL [Suspect]
     Active Substance: QUETIAPINE FUMARATE
     Indication: PRODUCT USED FOR UNKNOWN INDICATION
     Route: 048
     Dates: start: 20150714, end: 20150716
  22. ROZEREM [Suspect]
     Active Substance: RAMELTEON
     Indication: DELIRIUM
     Dosage: 8 MG DAILY 17:00
     Route: 048
     Dates: start: 20150709, end: 20150715
  23. BIOFERMIN R [Concomitant]
     Active Substance: BACILLUS SUBTILIS\LACTOBACILLUS ACIDOPHILUS\STREPTOCOCCUS FAECAIS
     Dates: start: 20150628, end: 20150711
  24. RISPERDAL [Concomitant]
     Active Substance: RISPERIDONE
     Route: 048
     Dates: start: 20150707
  25. METOPROLOL TARTATE [Concomitant]
     Active Substance: METOPROLOL TARTRATE
     Dates: start: 20150713
  26. TEICOPLANIN [Concomitant]
     Active Substance: TEICOPLANIN
     Dates: start: 20150715
  27. NEUART [Concomitant]
     Dates: start: 20150629
  28. NORMAL SALINE [Concomitant]
     Active Substance: SODIUM CHLORIDE
     Dates: end: 20150629
  29. SERENACE [Concomitant]
     Active Substance: HALOPERIDOL
     Dates: start: 20150606
  30. LASIX [Concomitant]
     Active Substance: FUROSEMIDE
     Dates: start: 20150715
  31. SEROQUEL [Suspect]
     Active Substance: QUETIAPINE FUMARATE
     Indication: PRODUCT USED FOR UNKNOWN INDICATION
     Route: 048
     Dates: start: 20150630, end: 20150710
  32. ROZEREM [Suspect]
     Active Substance: RAMELTEON
     Indication: DELIRIUM
     Route: 048
     Dates: start: 20150714, end: 20150716
  33. MIYA-BM [Concomitant]
     Active Substance: CLOSTRIDIUM BUTYRICUM SPORES STRAIN M-55
     Dates: start: 20150710, end: 20150720
  34. LAXOBERON [Concomitant]
     Active Substance: SODIUM PICOSULFATE
     Route: 048
     Dates: start: 20150706, end: 20150706
  35. ANHIBA [Concomitant]
     Active Substance: ACETAMINOPHEN
     Dates: start: 20150707
  36. AMIPAREN [Concomitant]
     Dates: start: 20150713, end: 20150714
  37. NOR-ADRENALIN [Concomitant]
  38. FENTANYL. [Concomitant]
     Active Substance: FENTANYL
  39. RECOMODULIN [Concomitant]
     Active Substance: THROMBOMODULIN ALFA
  40. CALONAL [Concomitant]
     Active Substance: ACETAMINOPHEN
     Dates: start: 20150709
  41. SOLITA-T1 [Concomitant]
     Dates: start: 20150711
  42. SOLDEM 3A [Concomitant]
     Active Substance: CARBOHYDRATES\POTASSIUM CHLORIDE\SODIUM CHLORIDE\SODIUM LACTATE
     Dates: start: 20150629
  43. ZOSYN [Concomitant]
     Active Substance: PIPERACILLIN SODIUM\TAZOBACTAM SODIUM
     Dates: start: 20150630
  44. FUTHAN [Concomitant]
     Active Substance: NAFAMOSTAT MESYLATE
  45. UNASYN S [Concomitant]
     Active Substance: AMPICILLIN SODIUM\SULBACTAM SODIUM
  46. SEROQUEL [Suspect]
     Active Substance: QUETIAPINE FUMARATE
     Indication: RESTLESSNESS
     Route: 048
     Dates: start: 20150714, end: 20150716
  47. FLAGYL [Suspect]
     Active Substance: METRONIDAZOLE\METRONIDAZOLE HYDROCHLORIDE
     Indication: PSEUDOMEMBRANOUS COLITIS
     Route: 048
     Dates: start: 20150713, end: 20150713
  48. PROPOFOL. [Concomitant]
     Active Substance: PROPOFOL
  49. MAGNESIUM SULFATE. [Concomitant]
     Active Substance: MAGNESIUM SULFATE
     Dates: start: 20150630
  50. SEROQUEL [Suspect]
     Active Substance: QUETIAPINE FUMARATE
     Indication: RESTLESSNESS
     Route: 048
     Dates: start: 20150630, end: 20150710
  51. NEOLAMIN MULTI V [Concomitant]
     Active Substance: HYDROXOCOBALAMIN\PYRIDOXINE HYDROCHLORIDE\THIAMINE HYDROCHLORIDE
     Dates: start: 20150713

REACTIONS (3)
  - Tubulointerstitial nephritis [Recovered/Resolved with Sequelae]
  - Off label use [Recovered/Resolved]
  - Body temperature increased [Unknown]

NARRATIVE: CASE EVENT DATE: 2015
